FAERS Safety Report 8298601-6 (Version None)
Quarter: 2012Q2

REPORT INFORMATION
  Report Type: 
  Country: None (occurrence: None)
  Receive Date: 20120417
  Receipt Date: 20120404
  Transmission Date: 20120825
  Serious: Yes (Other)
  Sender: FDA-Public Use
  Company Number: 2012MA004694

PATIENT
  Age: 48 Year
  Sex: Female

DRUGS (9)
  1. CHLORPHENAMINE [Concomitant]
  2. DEXAMETHASONE [Concomitant]
  3. RANITIDINE [Concomitant]
  4. DOCUSATE SODIUM [Concomitant]
  5. PACLITAXEL [Suspect]
     Indication: BREAST CANCER
     Dosage: 315 MG;X2;IV
     Route: 042
     Dates: end: 20110705
  6. GRANISETRON [Concomitant]
  7. DOMPERIDONE [Concomitant]
  8. PEGFILGRASTIM [Concomitant]
  9. DEXAMETHASONE [Concomitant]

REACTIONS (4)
  - RESPIRATORY DISORDER [None]
  - DYSPNOEA [None]
  - FATIGUE [None]
  - CHEST DISCOMFORT [None]
